FAERS Safety Report 13894518 (Version 1)
Quarter: 2017Q3

REPORT INFORMATION
  Report Type: Spontaneous
  Country: GB (occurrence: GB)
  Receive Date: 20170823
  Receipt Date: 20170823
  Transmission Date: 20171127
  Serious: Yes (Other)
  Sender: FDA-Public Use
  Company Number: GB-DEXPHARM-20171165

PATIENT
  Age: 82 Year
  Sex: Female
  Weight: 60 kg

DRUGS (13)
  1. ALENDRONIC ACID [Concomitant]
     Active Substance: ALENDRONIC ACID
     Dosage: FOLLOW INSTRUCTIONS CAREFULLY.
     Dates: start: 20170308
  2. CETIRIZINE [Concomitant]
     Active Substance: CETIRIZINE HYDROCHLORIDE
     Dosage: DAILY DOSE: 1 DF DOSAGE FORM EVERY DAYS
     Dates: start: 20170719
  3. CLOBETASONE BUTYRATE [Concomitant]
     Active Substance: CLOBETASONE BUTYRATE
     Dosage: THINLY.
     Dates: start: 20170726
  4. FEXOFENADINE [Concomitant]
     Active Substance: FEXOFENADINE\FEXOFENADINE HYDROCHLORIDE
     Dosage: DAILY DOSE: 1 DF DOSAGE FORM EVERY DAYS
     Dates: start: 20170804
  5. OMEPRAZOLE. [Suspect]
     Active Substance: OMEPRAZOLE
     Dates: start: 20170308
  6. INVITA-D3 [Concomitant]
     Dosage: ADULT MAINTENANCE DOSE. TAKE THE CONTENTS OF ON...
     Dates: start: 20170308
  7. BALNEUM [Concomitant]
     Dosage: APPLY AS DIRECTED.
     Dates: start: 20170726
  8. ESTRADIOL. [Concomitant]
     Active Substance: ESTRADIOL
     Dosage: INSERT HIGH INTO THE VAGINA
     Route: 067
     Dates: start: 20170505
  9. EVACAL D3 CHEWABLE [Concomitant]
     Dosage: DAILY DOSE: 1 DF DOSAGE FORM EVERY DAYS
     Dates: start: 20170308
  10. LIQUIFILM TEARS [Concomitant]
     Active Substance: POLYVINYL ALCOHOL
     Dosage: 2 DROPS TO BOTH EYES TWICE DAILY
     Route: 050
     Dates: start: 20170308
  11. BECLOMETASONE [Concomitant]
     Active Substance: BECLOMETHASONE DIPROPIONATE
     Dosage: 1 OR 2 PUFF(S) TWICE A DAY EACH NOSTRIL.
     Route: 045
     Dates: start: 20170308
  12. IBUPROFEN. [Concomitant]
     Active Substance: IBUPROFEN
     Dosage: UP TO 3 TIMES A DAY WITH FOOD.
     Dates: start: 20170308
  13. NYSTAN [Concomitant]
     Active Substance: NYSTATIN
     Indication: ORAL CANDIDIASIS
     Dates: start: 20170308

REACTIONS (1)
  - Subacute cutaneous lupus erythematosus [Unknown]
